FAERS Safety Report 5015134-0 (Version None)
Quarter: 2006Q2

REPORT INFORMATION
  Report Type: 
  Country: None (occurrence: None)
  Receive Date: 20060530
  Receipt Date: 20060520
  Transmission Date: 20061013
  Serious: Yes (Other)
  Sender: FDA-Public Use
  Company Number: 221757

PATIENT
  Sex: Male

DRUGS (1)
  1. RAPTIVA [Suspect]
     Dates: start: 20051101

REACTIONS (2)
  - CHRONIC LYMPHOCYTIC LEUKAEMIA [None]
  - LIGHT CHAIN ANALYSIS INCREASED [None]
